FAERS Safety Report 16716291 (Version 1)
Quarter: 2019Q3

REPORT INFORMATION
  Report Type: Report from Study
  Country: US (occurrence: US)
  Receive Date: 20190819
  Receipt Date: 20190819
  Transmission Date: 20191005
  Serious: No
  Sender: FDA-Public Use
  Company Number: US-IPSEN BIOPHARMACEUTICALS, INC.-2019-14589

PATIENT
  Age: 52 Year
  Sex: Female

DRUGS (25)
  1. TAMULOSIN [Concomitant]
     Active Substance: TAMSULOSIN
     Dates: start: 20190620
  2. DEXAMETHASON [Concomitant]
     Active Substance: DEXAMETHASONE
     Dates: start: 20190708
  3. ESTRADIOL. [Concomitant]
     Active Substance: ESTRADIOL
     Dates: start: 20180913
  4. ONDASETRON [Concomitant]
     Active Substance: ONDANSETRON
     Dates: start: 20180709
  5. VICTOZA [Concomitant]
     Active Substance: LIRAGLUTIDE
     Dosage: 18MG/3 ML
     Dates: start: 20190619
  6. FLUOXETINE [Concomitant]
     Active Substance: FLUOXETINE HYDROCHLORIDE
     Dates: start: 20190616
  7. PROCHLORPER [Concomitant]
     Dates: start: 20190709
  8. BUPROPION HCL [Concomitant]
     Active Substance: BUPROPION HYDROCHLORIDE
     Dates: start: 20190428
  9. FLUOXETINE [Concomitant]
     Active Substance: FLUOXETINE HYDROCHLORIDE
     Dates: start: 20190319
  10. LEVOTHYROXIN [Concomitant]
     Active Substance: LEVOTHYROXINE
     Dates: start: 20180403
  11. MELOXICAM. [Concomitant]
     Active Substance: MELOXICAM
     Dates: start: 20190614
  12. MELOXICAM. [Concomitant]
     Active Substance: MELOXICAM
     Dates: start: 20190617
  13. SOMATULINE DEPOT [Suspect]
     Active Substance: LANREOTIDE ACETATE
     Indication: ACROMEGALY
     Route: 058
     Dates: start: 20190116
  14. GABAPENTIN. [Concomitant]
     Active Substance: GABAPENTIN
     Dates: start: 20190523
  15. LEVOTHYROXIN [Concomitant]
     Active Substance: LEVOTHYROXINE
     Dates: start: 20190702
  16. OXYBUTYNIN. [Concomitant]
     Active Substance: OXYBUTYNIN CHLORIDE
     Dates: start: 20190620
  17. RANITIDINE. [Concomitant]
     Active Substance: RANITIDINE
     Dates: start: 20190430
  18. VICTOZA [Concomitant]
     Active Substance: LIRAGLUTIDE
     Dosage: 18MG/3 ML
     Dates: start: 20190618
  19. DOK [Concomitant]
     Active Substance: DOCUSATE SODIUM
     Dates: start: 20190620
  20. OXYCODONE/APAP [Concomitant]
     Active Substance: ACETAMINOPHEN\OXYCODONE HYDROCHLORIDE
     Dosage: 7.5 - 325
     Dates: start: 20190709
  21. TAMULOSIN [Concomitant]
     Active Substance: TAMSULOSIN
     Dates: start: 20190715
  22. TRIAMTERENE AND HYDROCHLOROTHIAZIDE [Concomitant]
     Active Substance: HYDROCHLOROTHIAZIDE\TRIAMTERENE
     Dosage: 37.5 - 25
     Dates: start: 20190617
  23. ATORVASTATIN [Concomitant]
     Active Substance: ATORVASTATIN
     Dates: start: 20181017
  24. BUPROPION HCL [Concomitant]
     Active Substance: BUPROPION HYDROCHLORIDE
     Dates: start: 20180722
  25. OXYBUTYNIN. [Concomitant]
     Active Substance: OXYBUTYNIN CHLORIDE
     Dates: start: 20190715

REACTIONS (1)
  - Malaise [Unknown]

NARRATIVE: CASE EVENT DATE: 20190807
